FAERS Safety Report 26185915 (Version 2)
Quarter: 2025Q4

REPORT INFORMATION
  Report Type: Spontaneous
  Country: US (occurrence: US)
  Receive Date: 20251222
  Receipt Date: 20251225
  Transmission Date: 20260117
  Serious: Yes (Life-Threatening, Other)
  Sender: KYOWA
  Company Number: US-KYOWAKIRIN-2025KK024010

PATIENT

DRUGS (2)
  1. POTELIGEO [Suspect]
     Active Substance: MOGAMULIZUMAB-KPKC
     Indication: Cutaneous T-cell lymphoma
     Dosage: EVERY OTHER WEEK TO EVERY 6 WEEKS
     Route: 042
     Dates: start: 202010
  2. POTELIGEO [Suspect]
     Active Substance: MOGAMULIZUMAB-KPKC
     Dosage: EVERY OTHER WEEK TO EVERY 6 WEEKS
     Route: 042
     Dates: end: 202305

REACTIONS (3)
  - Loss of consciousness [Recovered/Resolved]
  - Infusion related reaction [Recovered/Resolved]
  - Inappropriate schedule of product administration [Recovered/Resolved]

NARRATIVE: CASE EVENT DATE: 20201001
